FAERS Safety Report 5974350-1 (Version None)
Quarter: 2008Q4

REPORT INFORMATION
  Report Type: 
  Country: None (occurrence: None)
  Receive Date: 20081201
  Receipt Date: 20081128
  Transmission Date: 20090506
  Serious: Yes (Death, Hospitalization)
  Sender: FDA-Public Use
  Company Number: IT-PFIZER INC-2008097012

PATIENT
  Sex: Male

DRUGS (9)
  1. IRINOTECAN HCL [Suspect]
     Indication: GASTRIC CANCER
     Route: 042
     Dates: start: 20080721, end: 20080918
  2. FLUOROURACIL [Suspect]
     Indication: GASTRIC CANCER
     Route: 042
     Dates: start: 20080721, end: 20080918
  3. FLUOROURACIL [Suspect]
     Route: 042
     Dates: start: 20080721, end: 20080918
  4. FOLINIC ACID [Suspect]
     Indication: GASTRIC CANCER
     Route: 042
     Dates: start: 20080721, end: 20080918
  5. CISPLATIN [Suspect]
     Indication: GASTRIC CANCER
     Route: 042
     Dates: start: 20081010, end: 20081031
  6. DOCETAXEL [Suspect]
     Indication: GASTRIC CANCER
     Route: 042
     Dates: start: 20081010, end: 20081031
  7. SOLDESAM [Concomitant]
     Dates: end: 20081107
  8. KYTRIL [Concomitant]
     Dates: end: 20081107
  9. PANTORC [Concomitant]
     Dates: end: 20081107

REACTIONS (3)
  - GASTROINTESTINAL TOXICITY [None]
  - METABOLIC ACIDOSIS [None]
  - SHOCK [None]
